FAERS Safety Report 5510511-3 (Version None)
Quarter: 2007Q4

REPORT INFORMATION
  Report Type: 
  Country: None (occurrence: None)
  Receive Date: 20071108
  Receipt Date: 20071101
  Transmission Date: 20080405
  Serious: Yes (Hospitalization, Other)
  Sender: FDA-Public Use
  Company Number: US-AMGEN-US248888

PATIENT
  Sex: Female

DRUGS (10)
  1. ENBREL [Suspect]
     Indication: RHEUMATOID ARTHRITIS
     Route: 058
     Dates: start: 20030422
  2. METHOTREXATE [Suspect]
     Route: 048
     Dates: start: 20050309
  3. PREDNISONE TAB [Concomitant]
     Route: 065
  4. LIPITOR [Concomitant]
     Route: 065
  5. ZESTRIL [Concomitant]
     Route: 065
  6. FOLIC ACID [Concomitant]
     Route: 065
  7. DILTIAZEM [Concomitant]
     Route: 065
  8. ASPIRIN [Concomitant]
     Route: 065
  9. ADVAIR DISKUS 100/50 [Concomitant]
     Route: 065
  10. PREVACID [Concomitant]
     Route: 065

REACTIONS (4)
  - ANOREXIA [None]
  - CELLULITIS [None]
  - DEHYDRATION [None]
  - RENAL FAILURE ACUTE [None]
